FAERS Safety Report 5268588-9 (Version None)
Quarter: 2007Q1

REPORT INFORMATION
  Report Type: 
  Country: None (occurrence: None)
  Receive Date: 20070315
  Receipt Date: 20070315
  Transmission Date: 20070707
  Serious: Yes (Hospitalization)
  Sender: FDA-Public Use
  Company Number: None

PATIENT
  Weight: 46.2669 kg

DRUGS (2)
  1. TARCEVA [Suspect]
     Indication: BREAST CANCER METASTATIC
     Dosage: 150 MG  QD  PO
     Route: 048
     Dates: start: 20070103, end: 20070126
  2. FEMERA [Suspect]
     Indication: BREAST CANCER METASTATIC
     Dosage: 2.5 MG  QD  PO
     Route: 048
     Dates: start: 20070103, end: 20070127

REACTIONS (2)
  - DEHYDRATION [None]
  - PRESYNCOPE [None]
